FAERS Safety Report 4596562-4 (Version None)
Quarter: 2005Q1

REPORT INFORMATION
  Report Type: 
  Country: None (occurrence: None)
  Receive Date: 20050228
  Receipt Date: 20040513
  Transmission Date: 20050727
  Serious: No
  Sender: FDA-Public Use
  Company Number: 8015

PATIENT
  Age: 56 Year
  Sex: Female

DRUGS (5)
  1. METHOTREXATE [Suspect]
     Indication: RHEUMATOID ARTHRITIS
     Dosage: PO
     Route: 048
     Dates: start: 19970701
  2. PREDNISOLONE [Concomitant]
  3. DISODIUM ETIDRONATE [Concomitant]
  4. LANSOPRAZOLE [Concomitant]
  5. CARBIMAZOLE [Concomitant]

REACTIONS (2)
  - DYSGEUSIA [None]
  - GINGIVAL PAIN [None]
